FAERS Safety Report 10256923 (Version 1)
Quarter: 2014Q2

REPORT INFORMATION
  Report Type: Spontaneous
  Country: IE (occurrence: IE)
  Receive Date: 20140625
  Receipt Date: 20140625
  Transmission Date: 20141212
  Serious: Yes (Other)
  Sender: FDA-Public Use
  Company Number: IE-AMGEN INC.-IRLSP2014045795

PATIENT
  Age: 67 Year
  Sex: Male

DRUGS (1)
  1. ARANESP [Suspect]
     Indication: RENAL FAILURE CHRONIC
     Dosage: 40 MG, Q2WK
     Route: 058
     Dates: start: 20120911

REACTIONS (2)
  - Localised infection [Recovered/Resolved]
  - Haemoglobin abnormal [Unknown]
